FAERS Safety Report 6993097-6 (Version None)
Quarter: 2010Q3

REPORT INFORMATION
  Report Type: 
  Country: None (occurrence: None)
  Receive Date: 20100917
  Receipt Date: 20091125
  Transmission Date: 20110219
  Serious: Yes (Other)
  Sender: FDA-Public Use
  Company Number: US-ASTRAZENECA-2009UW20845

PATIENT
  Age: 35 Year
  Sex: Male
  Weight: 145.1 kg

DRUGS (7)
  1. SEROQUEL [Suspect]
     Indication: BIPOLAR DISORDER
     Dosage: 300 MG, 200 MG
     Route: 048
     Dates: start: 20031001
  2. SEROQUEL [Suspect]
     Route: 048
     Dates: start: 20051201, end: 20061001
  3. SEROQUEL [Suspect]
     Route: 048
     Dates: start: 20061020, end: 20061101
  4. ACTOS [Concomitant]
     Dates: start: 20060101
  5. ABILIFY [Concomitant]
     Dosage: 20 MG AND 30 MG
     Dates: start: 20040101
  6. GEODON [Concomitant]
     Dosage: 180 MG PER DAY
     Dates: start: 20080101
  7. DEPAKOTE [Concomitant]
     Dates: start: 19990101, end: 20040101

REACTIONS (5)
  - CONVULSION [None]
  - KETOACIDOSIS [None]
  - OBESITY [None]
  - PANCREATITIS [None]
  - TYPE 2 DIABETES MELLITUS [None]
